FAERS Safety Report 5476500-2 (Version None)
Quarter: 2007Q3

REPORT INFORMATION
  Report Type: 
  Country: None (occurrence: None)
  Receive Date: 20070925
  Receipt Date: 20070816
  Transmission Date: 20080115
  Serious: Yes (Other)
  Sender: FDA-Public Use
  Company Number: PHEH2007US11219

PATIENT

DRUGS (1)
  1. FOCALIN XR [Suspect]
     Dosage: 10 MG

REACTIONS (1)
  - DEPRESSION [None]
